FAERS Safety Report 9789008 (Version 1)
Quarter: 2013Q4

REPORT INFORMATION
  Report Type: Spontaneous
  Country: US (occurrence: US)
  Receive Date: 20131230
  Receipt Date: 20131230
  Transmission Date: 20140711
  Serious: No
  Sender: FDA-Public Use
  Company Number: US-ASTRAZENECA-2013SE77654

PATIENT
  Age: 70 Year
  Sex: Female
  Weight: 66.7 kg

DRUGS (8)
  1. LISINOPRIL [Suspect]
     Route: 048
     Dates: start: 2000, end: 2000
  2. BRILINTA [Suspect]
     Indication: STENT PLACEMENT
     Route: 048
     Dates: start: 20130926, end: 20130929
  3. MOBIC [Concomitant]
     Indication: ARTHRITIS
     Route: 048
  4. ASPIRIN [Concomitant]
     Route: 048
  5. RANEXA ER [Concomitant]
     Indication: CARDIAC DISORDER
     Route: 048
  6. LOPRESSOR [Concomitant]
     Indication: HYPERTENSION
  7. HYDROCHLOROTHIAZIDE [Concomitant]
     Indication: HYPERTENSION
  8. LIPITOR [Concomitant]
     Indication: BLOOD CHOLESTEROL INCREASED

REACTIONS (7)
  - Pleural effusion [Unknown]
  - Chest pain [Unknown]
  - Sleep disorder due to a general medical condition [Unknown]
  - Feeling abnormal [Unknown]
  - Overweight [Not Recovered/Not Resolved]
  - Cough [Recovered/Resolved]
  - Drug hypersensitivity [Not Recovered/Not Resolved]
